FAERS Safety Report 10236342 (Version 1)
Quarter: 2014Q1

REPORT INFORMATION
  Report Type: Spontaneous
  Country: US (occurrence: None)
  Receive Date: 20140306
  Receipt Date: 20140306
  Transmission Date: 20141002
  Serious: Yes (Other)
  Sender: FDA-Public Use
  Company Number: 163-21880-13041496

PATIENT
  Age: 53 Year
  Sex: Male

DRUGS (8)
  1. REVLIMID (LENALIDOMIDE) (25 MILLIGRAM, CAPSULES) [Suspect]
     Indication: PLASMA CELL MYELOMA
     Dosage: 25 MG , 1 IN 1 D , 07/ 2011 THRU 2011
     Route: 048
     Dates: start: 201107, end: 2011
  2. ASPIRIN (ACETYLSALICYLIC ACID) (TABLETS) [Concomitant]
  3. BACTRIM (BACTRIM) (TABLETS) [Concomitant]
  4. CALCIUM (CALCIUM) (TABLETS) [Concomitant]
  5. DEXAMETHASONE (DEXAMETHASONE) (TABLETS) [Concomitant]
  6. VITAMIN D (ERGOCALCIFEROL) (TABLETS) [Concomitant]
  7. CELEBREX (CELECOXIB) (TABLETS) [Concomitant]
  8. VELCADE (BORTEZOMIB) (UNKNOWN) [Concomitant]

REACTIONS (3)
  - Platelet count decreased [None]
  - Plasma cell myeloma [None]
  - Drug ineffective [None]
